FAERS Safety Report 5671269-0 (Version None)
Quarter: 2008Q1

REPORT INFORMATION
  Report Type: 
  Country: None (occurrence: None)
  Receive Date: 20080318
  Receipt Date: 20080306
  Transmission Date: 20080703
  Serious: Yes (Other)
  Sender: FDA-Public Use
  Company Number: US-PFIZER INC-2008021771

PATIENT
  Sex: Female
  Weight: 89.8 kg

DRUGS (7)
  1. LYRICA [Suspect]
     Indication: PAIN
     Route: 048
  2. LYRICA [Suspect]
     Indication: PARAESTHESIA
  3. GLUCOVANCE [Concomitant]
     Indication: DIABETES MELLITUS
  4. PLAVIX [Concomitant]
     Indication: CEREBROVASCULAR ACCIDENT
  5. LANTUS [Concomitant]
     Indication: DIABETES MELLITUS
  6. AVALIDE [Concomitant]
     Indication: BLOOD PRESSURE
  7. LOTREL [Concomitant]
     Indication: BLOOD PRESSURE

REACTIONS (1)
  - BLOOD GLUCOSE INCREASED [None]
